FAERS Safety Report 24351620 (Version 2)
Quarter: 2024Q3

REPORT INFORMATION
  Report Type: Spontaneous
  Country: FR (occurrence: FR)
  Receive Date: 20240923
  Receipt Date: 20240927
  Transmission Date: 20241017
  Serious: Yes (Life-Threatening, Hospitalization)
  Sender: MYLAN
  Company Number: None

PATIENT
  Age: 68 Year
  Sex: Female

DRUGS (3)
  1. CARBOPLATIN [Suspect]
     Active Substance: CARBOPLATIN
     Indication: Bronchial carcinoma
     Dosage: 3 DOSAGE FORM, CYCLE (C1D1 06/25/24, ADMINISTERED ON D1 D2 AND D3 THEREFORE, 25+26+27/06/24)
     Route: 042
     Dates: start: 20240625
  2. ETOPOSIDE [Suspect]
     Active Substance: ETOPOSIDE
     Indication: Bronchial carcinoma
     Dosage: 3 DOSAGE FORM, CYCLE (C1D1 06/25/24, ADMINISTERED ON D1 D2 AND D3 THEREFORE 25+26+27/06/24)
     Route: 042
     Dates: start: 20240625
  3. OSIMERTINIB [Concomitant]
     Active Substance: OSIMERTINIB
     Dosage: UNK
     Route: 065

REACTIONS (1)
  - Agranulocytosis [Recovered/Resolved]

NARRATIVE: CASE EVENT DATE: 20240703
